FAERS Safety Report 10479961 (Version 2)
Quarter: 2014Q4

REPORT INFORMATION
  Report Type: Spontaneous
  Country: CH (occurrence: CH)
  Receive Date: 20140929
  Receipt Date: 20141010
  Transmission Date: 20150528
  Serious: Yes (Other)
  Sender: FDA-Public Use
  Company Number: CH-BEH-2014045173

PATIENT
  Age: 66 Year
  Sex: Female
  Weight: 73 kg

DRUGS (2)
  1. PREDNISON [Concomitant]
     Active Substance: PREDNISONE
     Indication: LUNG DISORDER
     Dosage: START DATE ??-SEP-2013
     Route: 048
  2. PRIVIGEN [Suspect]
     Active Substance: HUMAN IMMUNOGLOBULIN G
     Indication: IMMUNODEFICIENCY COMMON VARIABLE
     Dosage: ROUTE OF ADMINISTRATION PER INFUSION; INFUSION DURATION APPROX. 4 HOURS
     Dates: start: 20140805, end: 20140805

REACTIONS (4)
  - Cerebrovascular accident [Recovered/Resolved]
  - Vasculitis [Recovered/Resolved]
  - Coordination abnormal [Recovered/Resolved]
  - Ischaemic cerebral infarction [Recovered/Resolved]

NARRATIVE: CASE EVENT DATE: 20140909
